FAERS Safety Report 8288871-2 (Version None)
Quarter: 2012Q2

REPORT INFORMATION
  Report Type: 
  Country: None (occurrence: None)
  Receive Date: 20120412
  Receipt Date: 20120402
  Transmission Date: 20120825
  Serious: Yes (Hospitalization)
  Sender: FDA-Public Use
  Company Number: AUR-APL-2012-00645

PATIENT
  Age: 82 Year
  Sex: Female

DRUGS (7)
  1. NAPRILENE (ENALAPRIL MALEATE) [Concomitant]
  2. LASIX [Concomitant]
  3. LANSOPRAZOLE [Concomitant]
  4. SIRIO [Concomitant]
  5. ASPIRIN [Concomitant]
  6. IMOVANE (ZOPICLONE) [Suspect]
     Indication: INSOMNIA
     Dosage: (7.5 MG, 1 D), ORAL
     Route: 048
     Dates: start: 20111125, end: 20111125
  7. MIRTAZAPINE [Suspect]
     Indication: DEPRESSION
     Dosage: (15 MG, 1 D0, ORAL
     Route: 048
     Dates: start: 20110527, end: 20111125

REACTIONS (2)
  - SOPOR [None]
  - SOMNOLENCE [None]
